FAERS Safety Report 7832924-7 (Version None)
Quarter: 2011Q4

REPORT INFORMATION
  Report Type: 
  Country: None (occurrence: None)
  Receive Date: 20111024
  Receipt Date: 20111019
  Transmission Date: 20120403
  Serious: Yes (Disabling, Other)
  Sender: FDA-Public Use
  Company Number: BR-PFIZER INC-2011251999

PATIENT
  Age: 62 Year
  Sex: Female
  Weight: 81 kg

DRUGS (4)
  1. LEVOTHYROXINE SODIUM [Concomitant]
     Indication: THYROID DISORDER
     Dosage: 100 MG, ONE TABLET IN THE MORNING WITH EMPTY STOMACH
  2. ATORVASTATIN [Concomitant]
     Indication: BLOOD CHOLESTEROL INCREASED
     Dosage: UNK
  3. CLOPIDOGREL [Concomitant]
     Indication: CEREBROVASCULAR ACCIDENT PROPHYLAXIS
     Dosage: UNK
  4. LYRICA [Suspect]
     Indication: HEADACHE
     Dosage: 75 MG, ONE CAPSULE AT NIGHT
     Route: 048
     Dates: start: 20110401

REACTIONS (3)
  - HYPOTENSION [None]
  - RENAL FAILURE CHRONIC [None]
  - CEREBROVASCULAR ACCIDENT [None]
